FAERS Safety Report 6155243-6 (Version None)
Quarter: 2009Q2

REPORT INFORMATION
  Report Type: 
  Country: None (occurrence: None)
  Receive Date: 20090415
  Receipt Date: 20090407
  Transmission Date: 20091009
  Serious: Yes (Other)
  Sender: FDA-Public Use
  Company Number: PHHY2008MX17275

PATIENT
  Sex: Female

DRUGS (4)
  1. STALEVO 100 [Suspect]
     Indication: PARKINSON'S DISEASE
     Dosage: 2 TABS (50/12.5/200 MG)
     Route: 048
     Dates: start: 20060101
  2. AKATINOL [Concomitant]
  3. EUTIROX [Concomitant]
     Indication: THYROID DISORDER
  4. LEXAPRO [Concomitant]
     Indication: ANXIETY

REACTIONS (3)
  - FALL [None]
  - LOWER LIMB FRACTURE [None]
  - PAIN [None]
